FAERS Safety Report 8605739-X (Version None)
Quarter: 2012Q3

REPORT INFORMATION
  Report Type: 
  Country: None (occurrence: None)
  Receive Date: 20120820
  Receipt Date: 20120806
  Transmission Date: 20120928
  Serious: Yes (Hospitalization)
  Sender: FDA-Public Use
  Company Number: NL-MYLANLABS-2012S1016187

PATIENT

DRUGS (3)
  1. REMIFENTANIL [Suspect]
     Indication: GENERAL ANAESTHESIA
     Dosage: 3.3 MICROG/MIN
     Route: 064
  2. REMIFENTANIL [Suspect]
     Dosage: 20 MICROG/MIN
     Route: 064
  3. NALOXONE [Suspect]
     Indication: NEONATAL RESPIRATORY DEPRESSION
     Dosage: 0.1 MG/KG
     Route: 042

REACTIONS (5)
  - FOETAL EXPOSURE DURING PREGNANCY [None]
  - BRADYCARDIA NEONATAL [None]
  - NEONATAL RESPIRATORY DEPRESSION [None]
  - HYPOTONIA NEONATAL [None]
  - TACHYPNOEA [None]
